FAERS Safety Report 6436727-X (Version None)
Quarter: 2009Q4

REPORT INFORMATION
  Report Type: 
  Country: None (occurrence: None)
  Receive Date: 20091110
  Receipt Date: 20080422
  Transmission Date: 20100525
  Serious: No
  Sender: FDA-Public Use
  Company Number: AEUSA200800106

PATIENT
  Age: 79 Year
  Sex: Male
  Weight: 66 kg

DRUGS (10)
  1. GAMUNEX [Suspect]
     Indication: MYASTHENIA GRAVIS
     Dosage: 27 GM; QD; IV
     Route: 042
     Dates: start: 20080408, end: 20080413
  2. GAMUNEX [Suspect]
  3. GAMUNEX [Suspect]
  4. PYRIDOSTIGMINE (CON.) [Concomitant]
  5. ASPIRIN /00002701/ (CON.) [Concomitant]
  6. FLOMAX /01280302/ (CON.) [Concomitant]
  7. ATROPINE (CON.) [Concomitant]
  8. ENLON (CON.) [Concomitant]
  9. NORMAL SALINE (CON.) [Concomitant]
  10. MESTINON (CON.) [Concomitant]

REACTIONS (4)
  - DRUG INEFFECTIVE [None]
  - DYSPHAGIA [None]
  - GASTROINTESTINAL SOUNDS ABNORMAL [None]
  - MUSCULAR WEAKNESS [None]
